FAERS Safety Report 8230459-3 (Version None)
Quarter: 2012Q1

REPORT INFORMATION
  Report Type: 
  Country: None (occurrence: None)
  Receive Date: 20120323
  Receipt Date: 20120220
  Transmission Date: 20120608
  Serious: Yes (Other)
  Sender: FDA-Public Use
  Company Number: JP-JNJFOC-20120310269

PATIENT

DRUGS (4)
  1. ZYRTEC [Suspect]
     Indication: PRODUCT USED FOR UNKNOWN INDICATION
     Route: 048
  2. OLOPATADINE HCL [Suspect]
     Indication: PRODUCT USED FOR UNKNOWN INDICATION
     Route: 065
  3. FENTANYL-100 [Suspect]
     Indication: PAIN
     Route: 062
  4. ZYRTEC [Suspect]
     Route: 048

REACTIONS (2)
  - TACHYCARDIA [None]
  - DYSPNOEA [None]
